FAERS Safety Report 19481922 (Version 1)
Quarter: 2021Q2

REPORT INFORMATION
  Report Type: Spontaneous
  Country: US (occurrence: US)
  Receive Date: 20210630
  Receipt Date: 20210630
  Transmission Date: 20210717
  Serious: No
  Sender: FDA-Public Use
  Company Number: None

PATIENT
  Age: 69 Year
  Sex: Female

DRUGS (1)
  1. DUPIXENT [Suspect]
     Active Substance: DUPILUMAB
     Indication: DERMATITIS ATOPIC
     Route: 058
     Dates: start: 202105

REACTIONS (4)
  - Device leakage [None]
  - Incorrect dose administered by device [None]
  - Device defective [None]
  - Incorrect dose administered [None]

NARRATIVE: CASE EVENT DATE: 20210625
